FAERS Safety Report 7914594-2 (Version None)
Quarter: 2011Q4

REPORT INFORMATION
  Report Type: 
  Country: None (occurrence: None)
  Receive Date: 20111115
  Receipt Date: 20111101
  Transmission Date: 20120403
  Serious: Yes (Other)
  Sender: FDA-Public Use
  Company Number: PHFR2011IE06282

PATIENT
  Sex: Female

DRUGS (2)
  1. CLOZARIL [Suspect]
     Dosage: 550 MG, UNK
     Route: 048
     Dates: start: 20080125
  2. CLOZARIL [Suspect]
     Indication: SCHIZOPHRENIA
     Dosage: 525 MG, UNK
     Route: 048
     Dates: start: 20110804

REACTIONS (1)
  - TOOTH ABSCESS [None]
